FAERS Safety Report 13900180 (Version 2)
Quarter: 2017Q3

REPORT INFORMATION
  Report Type: Report from Study
  Country: US (occurrence: US)
  Receive Date: 20170823
  Receipt Date: 20170831
  Transmission Date: 20171127
  Serious: Yes (Hospitalization)
  Sender: FDA-Public Use
  Company Number: US-B.I. PHARMACEUTICALS,INC./RIDGEFIELD-2017-BI-046003

PATIENT
  Age: 72 Year
  Sex: Female
  Weight: 56 kg

DRUGS (1)
  1. AFATINIB [Suspect]
     Active Substance: AFATINIB
     Indication: PANCREATIC CARCINOMA
     Route: 065
     Dates: start: 20170807

REACTIONS (5)
  - Delirium [Unknown]
  - Diarrhoea [Unknown]
  - Pyrexia [Unknown]
  - Sepsis [Unknown]
  - Septic shock [Unknown]

NARRATIVE: CASE EVENT DATE: 20170814
